FAERS Safety Report 18690915 (Version 20)
Quarter: 2025Q2

REPORT INFORMATION
  Report Type: Report from Study
  Country: US (occurrence: US)
  Receive Date: 20210101
  Receipt Date: 20250620
  Transmission Date: 20250716
  Serious: Yes (Hospitalization)
  Sender: TAKEDA
  Company Number: US-TAKEDA-US201931832

PATIENT
  Age: 60 Year
  Sex: Female
  Weight: 104 kg

DRUGS (53)
  1. HUMAN IMMUNOGLOBULIN G\HYALURONIDASE RECOMBINANT HUMAN [Suspect]
     Active Substance: HUMAN IMMUNOGLOBULIN G\HYALURONIDASE (HUMAN RECOMBINANT)
     Indication: Immunodeficiency common variable
     Dosage: 60 GRAM, Q4WEEKS
  2. HUMAN IMMUNOGLOBULIN G\HYALURONIDASE RECOMBINANT HUMAN [Suspect]
     Active Substance: HUMAN IMMUNOGLOBULIN G\HYALURONIDASE (HUMAN RECOMBINANT)
     Indication: Primary immunodeficiency syndrome
     Dosage: 60 GRAM, Q4WEEKS
     Dates: start: 20180215
  3. HUMAN IMMUNOGLOBULIN G\HYALURONIDASE RECOMBINANT HUMAN [Suspect]
     Active Substance: HUMAN IMMUNOGLOBULIN G\HYALURONIDASE (HUMAN RECOMBINANT)
     Dosage: 70 GRAM, Q4WEEKS
  4. SYMBICORT [Concomitant]
     Active Substance: BUDESONIDE\FORMOTEROL FUMARATE DIHYDRATE
  5. ZITHROMAX [Concomitant]
     Active Substance: AZITHROMYCIN DIHYDRATE
  6. LYRICA [Concomitant]
     Active Substance: PREGABALIN
  7. PRAMIPEXOLE DIHYDROCHLORIDE [Concomitant]
     Active Substance: PRAMIPEXOLE DIHYDROCHLORIDE
  8. AMITRIPTYLINE HYDROCHLORIDE [Concomitant]
     Active Substance: AMITRIPTYLINE HYDROCHLORIDE
  9. ROBAXIN [Concomitant]
     Active Substance: METHOCARBAMOL
  10. NYSTATIN [Concomitant]
     Active Substance: NYSTATIN
  11. DYMISTA [Concomitant]
     Active Substance: AZELASTINE HYDROCHLORIDE\FLUTICASONE PROPIONATE
  12. XANAX [Concomitant]
     Active Substance: ALPRAZOLAM
  13. PREDNISONE [Concomitant]
     Active Substance: PREDNISONE
  14. VAGIFEM [Concomitant]
     Active Substance: ESTRADIOL
  15. DIFLUCAN [Concomitant]
     Active Substance: FLUCONAZOLE
  16. TRAMADOL HCL [Concomitant]
     Active Substance: TRAMADOL HYDROCHLORIDE
  17. TRIAMCINOLONE ACETONIDE [Concomitant]
     Active Substance: TRIAMCINOLONE ACETONIDE
  18. SYNTHROID [Concomitant]
     Active Substance: LEVOTHYROXINE SODIUM
  19. REFRESH TEARS [Concomitant]
     Active Substance: CARBOXYMETHYLCELLULOSE SODIUM
  20. PRILOSEC [Concomitant]
     Active Substance: OMEPRAZOLE MAGNESIUM
  21. AIMOVIG [Concomitant]
     Active Substance: ERENUMAB-AOOE
  22. LATANOPROST [Concomitant]
     Active Substance: LATANOPROST
  23. ACETAMINOPHEN [Concomitant]
     Active Substance: ACETAMINOPHEN
  24. DIPHENHYDRAMINE HYDROCHLORIDE [Concomitant]
     Active Substance: DIPHENHYDRAMINE HYDROCHLORIDE
  25. EPINEPHRINE [Concomitant]
     Active Substance: EPINEPHRINE
  26. HYDROCHLOROTHIAZIDE [Concomitant]
     Active Substance: HYDROCHLOROTHIAZIDE
  27. BOTOX [Concomitant]
     Active Substance: ONABOTULINUMTOXINA
  28. COSENTYX [Concomitant]
     Active Substance: SECUKINUMAB
  29. REFRESH CLASSIC [Concomitant]
     Active Substance: POLYVINYL ALCOHOL\POVIDONE
  30. ESTRACE [Concomitant]
     Active Substance: ESTRADIOL
  31. PROAIR HFA [Concomitant]
     Active Substance: ALBUTEROL SULFATE
  32. PHENERGAN [Concomitant]
     Active Substance: PROMETHAZINE HYDROCHLORIDE
  33. KLOR-CON [Concomitant]
     Active Substance: POTASSIUM CHLORIDE
  34. KETOROLAC TROMETHAMINE [Concomitant]
     Active Substance: KETOROLAC TROMETHAMINE
  35. HYDROCORTISONE [Concomitant]
     Active Substance: HYDROCORTISONE
  36. METHOTREXATE [Concomitant]
     Active Substance: METHOTREXATE
  37. MAXALT [Concomitant]
     Active Substance: RIZATRIPTAN BENZOATE
  38. LORTAB [Concomitant]
     Active Substance: ACETAMINOPHEN\HYDROCODONE BITARTRATE
  39. PREMARIN [Concomitant]
     Active Substance: ESTROGENS, CONJUGATED
  40. TALTZ [Concomitant]
     Active Substance: IXEKIZUMAB
  41. ZIAC [Concomitant]
     Active Substance: BISOPROLOL FUMARATE\HYDROCHLOROTHIAZIDE
  42. PRAMIPEXOLE [Concomitant]
     Active Substance: PRAMIPEXOLE
  43. PROAIR HFA [Concomitant]
     Active Substance: ALBUTEROL SULFATE
  44. PROMETHAZINE HYDROCHLORIDE [Concomitant]
     Active Substance: PROMETHAZINE HYDROCHLORIDE
  45. SODIUM CHLORIDE [Concomitant]
     Active Substance: SODIUM CHLORIDE
  46. HYDROCHLOROTHIAZIDE [Concomitant]
     Active Substance: HYDROCHLOROTHIAZIDE
  47. HYDROCODONE [Concomitant]
     Active Substance: HYDROCODONE
  48. Lmx [Concomitant]
  49. DIPHENHYDRAMINE [Concomitant]
     Active Substance: DIPHENHYDRAMINE
  50. ACETAMINOPHEN [Concomitant]
     Active Substance: ACETAMINOPHEN
  51. METHOCARBAMOL [Concomitant]
     Active Substance: METHOCARBAMOL
  52. TREMFYA [Concomitant]
     Active Substance: GUSELKUMAB
  53. ACETAMINOPHEN\HYDROCODONE [Concomitant]
     Active Substance: ACETAMINOPHEN\HYDROCODONE

REACTIONS (33)
  - Colonoscopy abnormal [Unknown]
  - Illness [Unknown]
  - Pain [Unknown]
  - Pigmentation disorder [Unknown]
  - Dehydration [Unknown]
  - Infection [Unknown]
  - Skin disorder [Unknown]
  - Candida infection [Unknown]
  - Infusion related reaction [Unknown]
  - Alveolar osteitis [Unknown]
  - Gastrointestinal viral infection [Unknown]
  - Mass [Unknown]
  - Nasopharyngitis [Unknown]
  - Tooth disorder [Unknown]
  - Fungal infection [Unknown]
  - Product dose omission issue [Unknown]
  - Hypersomnia [Unknown]
  - Insomnia [Unknown]
  - Migraine [Unknown]
  - Malaise [Unknown]
  - Pain in extremity [Unknown]
  - Vomiting [Unknown]
  - Fatigue [Unknown]
  - Viral infection [Unknown]
  - COVID-19 [Unknown]
  - Insurance issue [Unknown]
  - Pharyngitis streptococcal [Unknown]
  - Respiratory tract infection [Unknown]
  - Immunoglobulins decreased [Unknown]
  - Multiple allergies [Unknown]
  - Inappropriate schedule of product administration [Unknown]
  - Sinusitis [Unknown]
  - Product use issue [Unknown]

NARRATIVE: CASE EVENT DATE: 20240916
